FAERS Safety Report 7422669-X (Version None)
Quarter: 2011Q2

REPORT INFORMATION
  Report Type: 
  Country: None (occurrence: None)
  Receive Date: 20110419
  Receipt Date: 20110407
  Transmission Date: 20111010
  Serious: Yes (Other)
  Sender: FDA-Public Use
  Company Number: CA-ELI_LILLY_AND_COMPANY-CA201104001993

PATIENT
  Sex: Male
  Weight: 102 kg

DRUGS (9)
  1. APO-DICLO                          /00372302/ [Concomitant]
  2. ZYPREXA [Suspect]
     Indication: PRODUCT USED FOR UNKNOWN INDICATION
     Dosage: 5 MG, EACH EVENING
  3. LIPITOR [Concomitant]
  4. DIOVAN HCT [Concomitant]
  5. HYDROCHLOROTHIAZIDE [Concomitant]
  6. CRESTOR [Concomitant]
  7. SUPEUDOL [Concomitant]
  8. ALERTEC [Concomitant]
  9. VIOXX [Concomitant]

REACTIONS (9)
  - LEFT ATRIAL HYPERTROPHY [None]
  - TYPE 2 DIABETES MELLITUS [None]
  - HYPERTENSION [None]
  - BLOOD CHOLESTEROL INCREASED [None]
  - WEIGHT INCREASED [None]
  - TACHYCARDIA [None]
  - NEUROPATHY PERIPHERAL [None]
  - SLEEP APNOEA SYNDROME [None]
  - ALANINE AMINOTRANSFERASE INCREASED [None]
